FAERS Safety Report 20553386 (Version 3)
Quarter: 2022Q3

REPORT INFORMATION
  Report Type: Spontaneous
  Country: US (occurrence: None)
  Receive Date: 20220304
  Receipt Date: 20220728
  Transmission Date: 20221027
  Serious: Yes (Other)
  Sender: FDA-Public Use
  Company Number: 2022A087922

PATIENT
  Age: 30622 Day
  Sex: Male
  Weight: 65.8 kg

DRUGS (47)
  1. NEXIUM 24HR [Suspect]
     Active Substance: ESOMEPRAZOLE MAGNESIUM
     Indication: Gastrooesophageal reflux disease
     Route: 048
     Dates: start: 2012, end: 2018
  2. NEXIUM 24HR [Suspect]
     Active Substance: ESOMEPRAZOLE MAGNESIUM
     Indication: Gastrooesophageal reflux disease
     Route: 048
     Dates: start: 2012, end: 2018
  3. NEXIUM 24HR [Suspect]
     Active Substance: ESOMEPRAZOLE MAGNESIUM
     Indication: Gastrooesophageal reflux disease
     Route: 048
     Dates: start: 2014, end: 2018
  4. NEXIUM 24HR [Suspect]
     Active Substance: ESOMEPRAZOLE MAGNESIUM
     Indication: Gastrooesophageal reflux disease
     Route: 048
     Dates: start: 2014, end: 2018
  5. ESOMEPRAZOLE [Suspect]
     Active Substance: ESOMEPRAZOLE
     Indication: Gastrooesophageal reflux disease
     Dosage: GENERIC
     Route: 065
  6. ESOMEPRAZOLE [Suspect]
     Active Substance: ESOMEPRAZOLE
     Indication: Gastrooesophageal reflux disease
     Dosage: GENERIC
     Route: 065
  7. OMEPRAZOLE [Suspect]
     Active Substance: OMEPRAZOLE
     Indication: Gastrooesophageal reflux disease
     Dosage: GENERIC
     Route: 065
     Dates: start: 2012, end: 2019
  8. OMEPRAZOLE [Suspect]
     Active Substance: OMEPRAZOLE
     Indication: Gastrooesophageal reflux disease
     Dosage: GENERIC
     Route: 065
     Dates: start: 2012, end: 2019
  9. DEXILANT [Suspect]
     Active Substance: DEXLANSOPRAZOLE
     Indication: Gastrooesophageal reflux disease
     Route: 065
     Dates: start: 2012, end: 2018
  10. DEXILANT [Suspect]
     Active Substance: DEXLANSOPRAZOLE
     Indication: Gastrooesophageal reflux disease
     Route: 065
     Dates: start: 2012, end: 2018
  11. ALLOPURINOL [Concomitant]
     Active Substance: ALLOPURINOL
  12. AMLODIPINE [Concomitant]
     Active Substance: AMLODIPINE BESYLATE
  13. ASPIRIN [Concomitant]
     Active Substance: ASPIRIN
  14. ATORVASTATIN [Concomitant]
     Active Substance: ATORVASTATIN
  15. CONTOUR [Concomitant]
  16. GABAPENTIN [Concomitant]
     Active Substance: GABAPENTIN
  17. LANCET [Concomitant]
  18. LISINOPRIL [Concomitant]
     Active Substance: LISINOPRIL
  19. METOPROLOL TARTRATE [Concomitant]
     Active Substance: METOPROLOL TARTRATE
  20. VITAMINS [Concomitant]
     Active Substance: VITAMINS
  21. MUPIROCIN [Concomitant]
     Active Substance: MUPIROCIN
  22. PIOGLITAZONE [Concomitant]
     Active Substance: PIOGLITAZONE
  23. RANITIDINE [Concomitant]
     Active Substance: RANITIDINE
  24. TRESIBA [Concomitant]
     Active Substance: INSULIN DEGLUDEC
  25. LEUCINE/VITAMIN B12 NOS/NICOTINAMIDE/CALCIUM PANTOTHENATE/VITAMIN E NO [Concomitant]
  26. VITAMIN D3 [Concomitant]
     Active Substance: CHOLECALCIFEROL
  27. VOLTAREN [Concomitant]
     Active Substance: DICLOFENAC SODIUM
  28. METFORMIN [Concomitant]
     Active Substance: METFORMIN HYDROCHLORIDE
  29. IBUPROFEN [Concomitant]
     Active Substance: IBUPROFEN
  30. PREDNISONE [Concomitant]
     Active Substance: PREDNISONE
  31. METAXALONE [Concomitant]
     Active Substance: METAXALONE
  32. FLUZONE [Concomitant]
     Active Substance: INFLUENZA A VIRUS A/CALIFORNIA/7/2009 X-179A (H1N1) ANTIGEN (FORMALDEHYDE INACTIVATED)\INFLUENZA A V
  33. CIPROFLOXACIN [Concomitant]
     Active Substance: CIPROFLOXACIN
  34. PROCRIT [Concomitant]
     Active Substance: ERYTHROPOIETIN
  35. ONDANSETRON [Concomitant]
     Active Substance: ONDANSETRON
  36. CALCITRIOL [Concomitant]
     Active Substance: CALCITRIOL
  37. METRONIDAZOLE [Concomitant]
     Active Substance: METRONIDAZOLE
  38. NITROGLYCERIN [Concomitant]
     Active Substance: NITROGLYCERIN
  39. LOTEMAX [Concomitant]
     Active Substance: LOTEPREDNOL ETABONATE
  40. RESTASIS [Concomitant]
     Active Substance: CYCLOSPORINE
  41. MECLIZINE [Concomitant]
     Active Substance: MECLIZINE HYDROCHLORIDE
  42. TRIAMCINOLONE [Concomitant]
     Active Substance: TRIAMCINOLONE
  43. CEPHALEXIN [Concomitant]
     Active Substance: CEPHALEXIN
  44. ILEVRO [Concomitant]
     Active Substance: NEPAFENAC
  45. VIGAMOX [Concomitant]
     Active Substance: MOXIFLOXACIN HYDROCHLORIDE
  46. ACETAMINOPHEN\HYDROCODONE BITARTRATE [Concomitant]
     Active Substance: ACETAMINOPHEN\HYDROCODONE BITARTRATE
  47. CETIRIZINE [Concomitant]
     Active Substance: CETIRIZINE HYDROCHLORIDE

REACTIONS (5)
  - Chronic kidney disease [Not Recovered/Not Resolved]
  - Renal failure [Unknown]
  - Hyperparathyroidism secondary [Unknown]
  - Nephrogenic anaemia [Unknown]
  - Gastrooesophageal reflux disease [Not Recovered/Not Resolved]

NARRATIVE: CASE EVENT DATE: 20180717
